FAERS Safety Report 18350448 (Version 1)
Quarter: 2020Q4

REPORT INFORMATION
  Report Type: Spontaneous
  Country: JP (occurrence: JP)
  Receive Date: 20201006
  Receipt Date: 20201006
  Transmission Date: 20210114
  Serious: Yes (Other)
  Sender: FDA-Public Use
  Company Number: JP-BAYER-2020-209404

PATIENT

DRUGS (3)
  1. SELEXIPAG [Concomitant]
     Active Substance: SELEXIPAG
  2. ADEMPAS [Suspect]
     Active Substance: RIOCIGUAT
  3. MACITENTAN [Concomitant]
     Active Substance: MACITENTAN

REACTIONS (4)
  - Myelosuppression [None]
  - Diarrhoea [None]
  - Vomiting [None]
  - Hypotension [None]
